FAERS Safety Report 5572281-2 (Version None)
Quarter: 2007Q4

REPORT INFORMATION
  Report Type: 
  Country: None (occurrence: None)
  Receive Date: 20071221
  Receipt Date: 20071213
  Transmission Date: 20080405
  Serious: Yes (Hospitalization)
  Sender: FDA-Public Use
  Company Number: PH-PFIZER INC-2007104737

PATIENT
  Age: 54 Year
  Sex: Female

DRUGS (2)
  1. DILANTIN [Suspect]
     Indication: CONVULSION
     Route: 042
  2. DILANTIN [Suspect]
     Route: 048

REACTIONS (3)
  - ERYTHEMA MULTIFORME [None]
  - OEDEMA PERIPHERAL [None]
  - PYREXIA [None]
